FAERS Safety Report 8665140 (Version 3)
Quarter: 2013Q4

REPORT INFORMATION
  Report Type: Spontaneous
  Country: US (occurrence: US)
  Receive Date: 20120716
  Receipt Date: 20131101
  Transmission Date: 20140711
  Serious: No
  Sender: FDA-Public Use
  Company Number: US-009507513-1207USA002106

PATIENT
  Age: 2 Year
  Sex: Male

DRUGS (5)
  1. SINGULAIR [Suspect]
     Indication: RHINITIS ALLERGIC
     Dosage: 4 MG, HS
     Route: 048
     Dates: start: 20120614, end: 20120624
  2. SINGULAIR [Suspect]
     Indication: ALLERGY TO ARTHROPOD BITE
  3. ZANTAC [Concomitant]
  4. ZYRTEC [Concomitant]
     Indication: RHINITIS ALLERGIC
  5. MIRALAX [Concomitant]
     Indication: ALLERGY TO ARTHROPOD BITE
     Dosage: UNK

REACTIONS (2)
  - Dysphemia [Not Recovered/Not Resolved]
  - Learning disorder [Not Recovered/Not Resolved]
